FAERS Safety Report 4393401-1 (Version None)
Quarter: 2004Q3

REPORT INFORMATION
  Report Type: 
  Country: None (occurrence: None)
  Receive Date: 20040707
  Receipt Date: 20040707
  Transmission Date: 20050211
  Serious: Yes (Hospitalization)
  Sender: FDA-Public Use
  Company Number: None

PATIENT
  Age: 92 Year
  Sex: Male
  Weight: 90 kg

DRUGS (3)
  1. FOSAMAX [Suspect]
     Indication: OSTEOPOROSIS
     Dosage: 5 MG QOD ORAL
     Route: 048
     Dates: start: 20030612, end: 20040612
  2. WARFARIN SODIUM [Suspect]
     Indication: CEREBROVASCULAR ACCIDENT
     Dosage: WARFARIN 2.5 MG ALT ORAL
     Route: 048
     Dates: start: 20030612, end: 20040612
  3. WARFARIN SODIUM [Suspect]

REACTIONS (5)
  - COAGULATION TIME PROLONGED [None]
  - HAEMATEMESIS [None]
  - INTERNATIONAL NORMALISED RATIO INCREASED [None]
  - OESOPHAGEAL ULCER HAEMORRHAGE [None]
  - URINARY TRACT INFECTION [None]
